FAERS Safety Report 5204471-2 (Version None)
Quarter: 2007Q1

REPORT INFORMATION
  Report Type: 
  Country: None (occurrence: None)
  Receive Date: 20070110
  Receipt Date: 20060405
  Transmission Date: 20070707
  Serious: No
  Sender: FDA-Public Use
  Company Number: US-BRISTOL-MYERS SQUIBB COMPANY-13337522

PATIENT
  Age: 14 Year
  Sex: Male
  Weight: 73 kg

DRUGS (3)
  1. ABILIFY [Suspect]
     Route: 048
     Dates: start: 20060222
  2. ANTIBIOTIC [Concomitant]
     Indication: ACNE
  3. VITAMIN B-12 [Concomitant]

REACTIONS (1)
  - TREMOR [None]
